FAERS Safety Report 14074447 (Version 2)
Quarter: 2018Q1

REPORT INFORMATION
  Report Type: Spontaneous
  Country: US (occurrence: US)
  Receive Date: 20171010
  Receipt Date: 20180111
  Transmission Date: 20180508
  Serious: Yes (Hospitalization)
  Sender: FDA-Public Use
  Company Number: US-SAOL THERAPEUTICS-2017SAO01565

PATIENT
  Age: 29 Year
  Sex: Female

DRUGS (3)
  1. LIORESAL [Suspect]
     Active Substance: BACLOFEN
     Dosage: UNK
     Route: 037
     Dates: start: 201709
  2. LIORESAL [Suspect]
     Active Substance: BACLOFEN
     Indication: CEREBRAL PALSY
     Dosage: 550 ?G, \DAY
     Route: 037
     Dates: start: 201709
  3. ORAL BACLOFEN [Suspect]
     Active Substance: BACLOFEN
     Route: 048

REACTIONS (8)
  - Paraesthesia [Recovering/Resolving]
  - Cerebral palsy [Recovering/Resolving]
  - Sedation [None]
  - Drug withdrawal syndrome [Recovering/Resolving]
  - Therapy non-responder [Unknown]
  - Complication associated with device [Recovered/Resolved]
  - Feeling abnormal [Recovering/Resolving]
  - Fall [Recovering/Resolving]

NARRATIVE: CASE EVENT DATE: 2017
